FAERS Safety Report 13415412 (Version 1)
Quarter: 2017Q2

REPORT INFORMATION
  Report Type: Spontaneous
  Country: NL (occurrence: NL)
  Receive Date: 20170407
  Receipt Date: 20170407
  Transmission Date: 20170830
  Serious: Yes (Death, Life-Threatening, Hospitalization)
  Sender: FDA-Public Use
  Company Number: NL-JNJFOC-20170403164

PATIENT
  Age: 73 Year
  Sex: Male
  Weight: 88 kg

DRUGS (8)
  1. AMILORIDE [Concomitant]
     Active Substance: AMILORIDE
     Route: 048
  2. CIPROFLOXACIN. [Interacting]
     Active Substance: CIPROFLOXACIN
     Indication: URINARY TRACT INFECTION
     Route: 048
     Dates: start: 20170202, end: 20170216
  3. OMEPRAZOLE. [Concomitant]
     Active Substance: OMEPRAZOLE
     Route: 048
  4. OXYCODON [Concomitant]
     Active Substance: OXYCODONE
     Route: 048
  5. OXYCODON [Concomitant]
     Active Substance: OXYCODONE
     Route: 048
  6. HYDROCHLOORTHIAZIDE [Concomitant]
     Active Substance: HYDROCHLOROTHIAZIDE
     Route: 048
  7. IMBRUVICA [Suspect]
     Active Substance: IBRUTINIB
     Indication: CHRONIC LYMPHOCYTIC LEUKAEMIA
     Route: 048
     Dates: start: 20161125, end: 20170314
  8. FOSINOPRIL [Concomitant]
     Active Substance: FOSINOPRIL
     Route: 048

REACTIONS (8)
  - Hepatic failure [Fatal]
  - Hepatic necrosis [Unknown]
  - Leukopenia [Unknown]
  - Anaemia [Unknown]
  - Back pain [Unknown]
  - Liver function test abnormal [Unknown]
  - Drug interaction [Unknown]
  - Febrile neutropenia [Unknown]

NARRATIVE: CASE EVENT DATE: 20170202
